FAERS Safety Report 14181065 (Version 3)
Quarter: 2018Q1

REPORT INFORMATION
  Report Type: Report from Study
  Country: None (occurrence: US)
  Receive Date: 20171112
  Receipt Date: 20180330
  Transmission Date: 20180508
  Serious: Yes (Other)
  Sender: FDA-Public Use
  Company Number: US-ABBVIE-17K-163-2062740-00

PATIENT
  Sex: Male

DRUGS (2)
  1. HUMIRA [Suspect]
     Active Substance: ADALIMUMAB
     Indication: PSORIASIS
     Route: 058
     Dates: start: 201703
  2. HUMIRA [Suspect]
     Active Substance: ADALIMUMAB
     Route: 058

REACTIONS (5)
  - Back pain [Unknown]
  - Back injury [Unknown]
  - Fall [Unknown]
  - Nausea [Unknown]
  - Psoriasis [Unknown]

NARRATIVE: CASE EVENT DATE: 2017
